FAERS Safety Report 6447684-4 (Version None)
Quarter: 2009Q4

REPORT INFORMATION
  Report Type: 
  Country: None (occurrence: None)
  Receive Date: 20091120
  Receipt Date: 20091110
  Transmission Date: 20100525
  Serious: Yes (Hospitalization)
  Sender: FDA-Public Use
  Company Number: US-BIOGENIDEC-2009BI030856

PATIENT
  Age: 56 Year
  Sex: Male

DRUGS (5)
  1. TYSABRI [Suspect]
     Indication: MULTIPLE SCLEROSIS
     Route: 042
     Dates: start: 20080129, end: 20090803
  2. OXYCONTIN [Concomitant]
  3. PERCOCET [Concomitant]
     Indication: PAIN
  4. KADIAN [Concomitant]
  5. DURAGESIC-100 [Concomitant]

REACTIONS (1)
  - PNEUMONIA [None]
